FAERS Safety Report 15043681 (Version 1)
Quarter: 2018Q2

REPORT INFORMATION
  Report Type: Spontaneous
  Country: US (occurrence: US)
  Receive Date: 20180531
  Receipt Date: 20180531
  Transmission Date: 20180711
  Serious: Yes (Hospitalization)
  Sender: FDA-Public Use
  Company Number: None

PATIENT
  Age: 65 Year
  Sex: Female
  Weight: 53.52 kg

DRUGS (6)
  1. AMLODIPINE [Concomitant]
     Active Substance: AMLODIPINE BESYLATE
  2. BETAMETHASONE DIPROPIONATE. [Concomitant]
     Active Substance: BETAMETHASONE DIPROPIONATE
  3. DIPROSONE [Concomitant]
     Active Substance: BETAMETHASONE DIPROPIONATE
  4. AMMONIUM LACTATE. [Concomitant]
     Active Substance: AMMONIUM LACTATE
  5. AUGMENTIN [Suspect]
     Active Substance: AMOXICILLIN\CLAVULANATE POTASSIUM
     Indication: ARTHRITIS INFECTIVE
     Dosage: ?          QUANTITY:1 DF DOSAGE FORM;?
     Route: 048
     Dates: start: 20180403, end: 20180406
  6. PREDNISONE. [Concomitant]
     Active Substance: PREDNISONE

REACTIONS (1)
  - Rash generalised [None]

NARRATIVE: CASE EVENT DATE: 20180407
